FAERS Safety Report 15014628 (Version 2)
Quarter: 2018Q4

REPORT INFORMATION
  Report Type: Report from Study
  Country: US (occurrence: US)
  Receive Date: 20180615
  Receipt Date: 20181212
  Transmission Date: 20190204
  Serious: Yes (Other)
  Sender: FDA-Public Use
  Company Number: PHHY2018US020370

PATIENT
  Age: 32 Year
  Sex: Female
  Weight: 111.1 kg

DRUGS (1)
  1. GILENYA [Suspect]
     Active Substance: FINGOLIMOD HYDROCHLORIDE
     Indication: MULTIPLE SCLEROSIS
     Dosage: 0.5 MG, UNK
     Route: 048
     Dates: start: 20180302

REACTIONS (1)
  - Cholecystitis acute [Unknown]

NARRATIVE: CASE EVENT DATE: 20180424
